FAERS Safety Report 19070714 (Version 4)
Quarter: 2021Q2

REPORT INFORMATION
  Report Type: Spontaneous
  Country: JP (occurrence: JP)
  Receive Date: 20210330
  Receipt Date: 20210609
  Transmission Date: 20210717
  Serious: Yes (Hospitalization, Other)
  Sender: FDA-Public Use
  Company Number: JP-APOTEX-2021AP007357

PATIENT

DRUGS (12)
  1. FLUNITRAZEPAM TABLETS TABLET [Concomitant]
     Dosage: 4 MG, QD, BEFORE BEDTIME
     Route: 048
     Dates: end: 20210302
  2. ANAFRANIL [Suspect]
     Active Substance: CLOMIPRAMINE HYDROCHLORIDE
     Dosage: 125 MG, ONE TABLET IN THE MORNING, ONE TABLET IN THE EVENING, THREE TABLETS BEFORE BEDTIME
     Route: 048
     Dates: end: 20210302
  3. TRIAZOLAM TABLETS TABLET [Concomitant]
     Dosage: 0.5 MG, QD, BEFORE BEDTIME
     Route: 048
     Dates: end: 20210302
  4. PAXIL CR [Suspect]
     Active Substance: PAROXETINE HYDROCHLORIDE
     Indication: DEPRESSION
     Dosage: 25 MG, QD (IN THE EVENING)
     Route: 048
     Dates: end: 20210302
  5. ANAFRANIL [Suspect]
     Active Substance: CLOMIPRAMINE HYDROCHLORIDE
     Indication: PRODUCT USED FOR UNKNOWN INDICATION
     Dosage: 125 MG, ONE TABLET IN THE MORNING, ONE TABLET IN THE AFTERNOON, THREE TABLETS BEFORE BEDTIME
     Route: 048
     Dates: end: 20210302
  6. ETIZOLAM [Concomitant]
     Active Substance: ETIZOLAM
     Indication: PRODUCT USED FOR UNKNOWN INDICATION
     Dosage: 1 DF, TID, MORNING AND EVENING, BEFORE BEDTIME
     Route: 048
     Dates: end: 20210302
  7. FLUNITRAZEPAM [Concomitant]
     Active Substance: FLUNITRAZEPAM
     Indication: PRODUCT USED FOR UNKNOWN INDICATION
     Dosage: 4 MG, QD, BEFORE BEDTIME
     Route: 048
     Dates: end: 20210302
  8. TRIAZOLAM. [Concomitant]
     Active Substance: TRIAZOLAM
     Indication: PRODUCT USED FOR UNKNOWN INDICATION
     Dosage: 0.5 MG, QD, BEFORE BEDTIME
     Route: 048
     Dates: end: 20210302
  9. EPINASTINE HYDROCHLORIDE TABLET TABLET [Concomitant]
     Dosage: 20 MG, QD, EVENING
     Route: 048
     Dates: end: 20210302
  10. EPINASTINE. [Concomitant]
     Active Substance: EPINASTINE HYDROCHLORIDE
     Indication: PRODUCT USED FOR UNKNOWN INDICATION
     Dosage: 20 MG, QD, EVENING
     Route: 048
     Dates: end: 20210302
  11. PAXIL CR [Suspect]
     Active Substance: PAROXETINE HYDROCHLORIDE
     Dosage: 25 MG, QD, IN THE EVENING
     Route: 048
     Dates: end: 20210302
  12. ETIZOLAM TABLETS TABLET [Concomitant]
     Dosage: 1 DF, TID, MORNING AND EVENING, BEFORE BEDTIME
     Route: 048
     Dates: end: 20210302

REACTIONS (16)
  - Disorientation [Recovering/Resolving]
  - Anal incontinence [Recovering/Resolving]
  - Altered state of consciousness [Recovering/Resolving]
  - Rib fracture [Unknown]
  - Fall [Unknown]
  - Head injury [Unknown]
  - Urinary tract infection [Recovering/Resolving]
  - Withdrawal syndrome [Recovering/Resolving]
  - Pyrexia [Recovering/Resolving]
  - Urinary incontinence [Recovering/Resolving]
  - Musculoskeletal stiffness [Recovering/Resolving]
  - Somnolence [Recovering/Resolving]
  - Movement disorder [Unknown]
  - Epilepsy [Recovering/Resolving]
  - Muscle spasms [Recovering/Resolving]
  - Dysphagia [Not Recovered/Not Resolved]

NARRATIVE: CASE EVENT DATE: 20210302
